FAERS Safety Report 9234636 (Version 1)
Quarter: 2013Q2

REPORT INFORMATION
  Report Type: Spontaneous
  Country: PH (occurrence: PH)
  Receive Date: 20130416
  Receipt Date: 20130416
  Transmission Date: 20140414
  Serious: Yes (Other)
  Sender: FDA-Public Use
  Company Number: PH-BRISTOL-MYERS SQUIBB COMPANY-18777698

PATIENT
  Age: 14 Year
  Sex: Male

DRUGS (2)
  1. ABILIFY TABS 10 MG [Suspect]
     Indication: DEPRESSION
     Dosage: 10MG/DAY
     Route: 048
     Dates: start: 20130318
  2. PROPRANOLOL [Concomitant]

REACTIONS (3)
  - Tremor [Recovered/Resolved]
  - Restless legs syndrome [Recovered/Resolved]
  - Akathisia [Recovered/Resolved]
